FAERS Safety Report 9123855 (Version 1)
Quarter: 2013Q1

REPORT INFORMATION
  Report Type: Report from Study
  Country: US (occurrence: US)
  Receive Date: 20130227
  Receipt Date: 20130227
  Transmission Date: 20140127
  Serious: Yes (Hospitalization)
  Sender: FDA-Public Use
  Company Number: US-UCBSA-001798

PATIENT
  Age: 26 Year
  Sex: Male
  Weight: 90.8 kg

DRUGS (6)
  1. LACOSAMIDE [Suspect]
     Indication: EPILEPSY
     Route: 048
     Dates: start: 20090204, end: 20090929
  2. ATIVAN [Concomitant]
     Indication: CONVULSION
     Dates: start: 20030916
  3. TRILEPTAL [Concomitant]
     Dosage: QDAM
     Dates: start: 20090617
  4. TRILEPTAL [Concomitant]
     Dosage: QDPM
     Dates: start: 20090617
  5. METOPROLOL XR [Concomitant]
     Indication: ATRIAL FIBRILLATION
     Route: 048
     Dates: start: 20090901
  6. WARFARIN [Concomitant]
     Indication: SUPRAVENTRICULAR TACHYCARDIA
     Dates: start: 20090925

REACTIONS (1)
  - Arrhythmia supraventricular [Recovered/Resolved]
